FAERS Safety Report 7186908-5 (Version None)
Quarter: 2010Q4

REPORT INFORMATION
  Report Type: 
  Country: None (occurrence: None)
  Receive Date: 20101222
  Receipt Date: 20101214
  Transmission Date: 20110411
  Serious: Yes (Hospitalization)
  Sender: FDA-Public Use
  Company Number: DE-ELI_LILLY_AND_COMPANY-DE201012003516

PATIENT
  Sex: Female
  Weight: 57.2 kg

DRUGS (12)
  1. PEMETREXED [Suspect]
     Indication: NON-SMALL CELL LUNG CANCER
     Dosage: 800 MG, OTHER
     Route: 042
     Dates: start: 20101208
  2. CISPLATIN [Suspect]
     Indication: NON-SMALL CELL LUNG CANCER
     Dosage: 120 MG, OTHER
     Route: 042
     Dates: start: 20101208
  3. BROMAZANIL [Concomitant]
     Dosage: 6 MG, UNK
  4. SIMVASTATIN [Concomitant]
     Dosage: 40 MG, UNK
  5. ASPIRIN [Concomitant]
     Dosage: 100 MG, UNK
  6. PLAVIX [Concomitant]
     Dosage: 75 MG, UNK
  7. BLOPRESS [Concomitant]
     Dosage: 8 MG, UNK
  8. CODICAPS [Concomitant]
     Dosage: 30 MG, UNK
  9. FOLSAN [Concomitant]
     Dosage: 0.4 MG, UNK
  10. RAMIPRIL [Concomitant]
     Dosage: 2.5 MG, UNK
  11. NOVELIAN [Concomitant]
     Dosage: UNK, AS NEEDED
  12. KEVATRIL [Concomitant]
     Dosage: 3 MG, UNK
     Dates: start: 20101212

REACTIONS (1)
  - PERFORMANCE STATUS DECREASED [None]
